FAERS Safety Report 17039904 (Version 1)
Quarter: 2019Q4

REPORT INFORMATION
  Report Type: Spontaneous
  Country: GB (occurrence: GB)
  Receive Date: 20191116
  Receipt Date: 20191116
  Transmission Date: 20200122
  Serious: Yes (Hospitalization)
  Sender: FDA-Public Use
  Company Number: GB-ACCORD-160778

PATIENT
  Age: 62 Year
  Sex: Male
  Weight: 72 kg

DRUGS (5)
  1. BISOPROLOL [Concomitant]
     Active Substance: BISOPROLOL
  2. ATORVASTATIN [Concomitant]
     Active Substance: ATORVASTATIN
  3. PREDNISOLONE. [Concomitant]
     Active Substance: PREDNISOLONE
  4. APIXABAN [Concomitant]
     Active Substance: APIXABAN
  5. DOCETAXEL. [Suspect]
     Active Substance: DOCETAXEL
     Indication: PROSTATE CANCER STAGE IV
     Route: 042
     Dates: start: 20180716

REACTIONS (3)
  - Chills [Unknown]
  - Pyrexia [Unknown]
  - Neutropenic sepsis [Not Recovered/Not Resolved]

NARRATIVE: CASE EVENT DATE: 20180721
